FAERS Safety Report 5235540-9 (Version None)
Quarter: 2007Q1

REPORT INFORMATION
  Report Type: 
  Country: None (occurrence: None)
  Receive Date: 20061208
  Receipt Date: 20060629
  Transmission Date: 20070707
  Serious: Yes (Other)
  Sender: FDA-Public Use
  Company Number: 2006UW13674

PATIENT
  Age: 77 Year
  Sex: Male
  Weight: 77.11 kg

DRUGS (7)
  1. CRESTOR [Suspect]
     Indication: BLOOD CHOLESTEROL INCREASED
     Dosage: 10 MG PO
     Route: 048
  2. PROPRANOLOL [Concomitant]
  3. ALLOPURINOL [Concomitant]
  4. PRILOSEC [Concomitant]
  5. GLYBURIDE [Concomitant]
  6. BENICAR [Concomitant]
  7. SYNTHROID [Concomitant]

REACTIONS (1)
  - NASAL DRYNESS [None]
